FAERS Safety Report 13395181 (Version 1)
Quarter: 2017Q2

REPORT INFORMATION
  Report Type: Report from Study
  Country: DE (occurrence: DE)
  Receive Date: 20170403
  Receipt Date: 20170403
  Transmission Date: 20170830
  Serious: Yes (Other)
  Sender: FDA-Public Use
  Company Number: DE-ROCHE-702146

PATIENT
  Age: 74 Year
  Sex: Male

DRUGS (7)
  1. SULFUR HEXAFLUORIDE GAS [Suspect]
     Active Substance: SULFUR HEXAFLUORIDE
     Indication: NEOVASCULAR AGE-RELATED MACULAR DEGENERATION
  2. BEVACIZUMAB [Suspect]
     Active Substance: BEVACIZUMAB
     Indication: NEOVASCULAR AGE-RELATED MACULAR DEGENERATION
     Dosage: DOSE: 1.25 MG DISSOLVED IN 0.05 ML OF BSS (NOT REPORTED)
     Route: 050
  3. BEVACIZUMAB [Suspect]
     Active Substance: BEVACIZUMAB
     Indication: RETINAL HAEMORRHAGE
  4. SULFUR HEXAFLUORIDE GAS [Suspect]
     Active Substance: SULFUR HEXAFLUORIDE
     Indication: RETINAL HAEMORRHAGE
     Route: 065
  5. ALTEPLASE [Suspect]
     Active Substance: ALTEPLASE
     Indication: NEOVASCULAR AGE-RELATED MACULAR DEGENERATION
     Dosage: DOSE: 10 - 20 MCG DISSOLVED IN 0.05 - 0.1 ML OF BSS (NOT REPORTED)
     Route: 065
  6. DIPYRIDAMOLE. [Suspect]
     Active Substance: DIPYRIDAMOLE
     Indication: THROMBOSIS PROPHYLAXIS
     Route: 065
  7. ASPIRIN. [Suspect]
     Active Substance: ASPIRIN
     Indication: THROMBOSIS PROPHYLAXIS
     Route: 048

REACTIONS (1)
  - Retinal haemorrhage [Unknown]
